FAERS Safety Report 12313607 (Version 1)
Quarter: 2016Q2

REPORT INFORMATION
  Report Type: Spontaneous
  Country: GB (occurrence: GB)
  Receive Date: 20160428
  Receipt Date: 20160428
  Transmission Date: 20160815
  Serious: Yes (Other)
  Sender: FDA-Public Use
  Company Number: GB-PFIZER INC-2016228611

PATIENT
  Age: 35 Year
  Sex: Male
  Weight: 80 kg

DRUGS (6)
  1. NITROGLYCERIN. [Suspect]
     Active Substance: NITROGLYCERIN
     Dosage: UNK
     Dates: start: 20160218
  2. CLENIL MODULITE [Concomitant]
     Active Substance: BECLOMETHASONE DIPROPIONATE
     Dosage: 2 DF, 2X/DAY ((DOSAGE TEXT: DAILY DOSE: 4 DF DOSAGE FORM EVERY DAYS, DOSE: 2 DF DOSAGE FORM, SEP. D)
     Route: 055
     Dates: start: 20150630
  3. LEVOTHYROXINE. [Concomitant]
     Active Substance: LEVOTHYROXINE
     Dosage: 1 DF, 1X/DAY (DOSAGE TEXT: DAILY DOSE: 1 DF DOSAGE FORM EVERY DAYS, DOSE: 1 DF DOSAGE FORM, SEP. DO)
     Dates: start: 20141111
  4. VOLUMATIC [Concomitant]
     Dosage: UNK
     Dates: start: 20150630
  5. NORTRIPTYLINE [Concomitant]
     Active Substance: NORTRIPTYLINE
     Dosage: 1 DF, 1X/DAY (DURATION: 554 DAY DOSAGE TEXT: DAILY DOSE: 1 DF DOSAGE FORM EVERY DAYS, DOSE: 1 DF DO)
     Dates: start: 20140813, end: 20160218
  6. SALBUTAMOL [Concomitant]
     Active Substance: ALBUTEROL
     Dosage: UNK, AS NEEDED (SEP. DOSAGES / INTERVAL: 1 AS NECESSARY)
     Route: 055
     Dates: start: 20150619

REACTIONS (1)
  - Cervicogenic headache [Recovered/Resolved]

NARRATIVE: CASE EVENT DATE: 20160411
